FAERS Safety Report 4460469-3 (Version None)
Quarter: 2004Q3

REPORT INFORMATION
  Report Type: 
  Country: None (occurrence: None)
  Receive Date: 20040928
  Receipt Date: 20040823
  Transmission Date: 20050211
  Serious: No
  Sender: FDA-Public Use
  Company Number: US-GLAXOSMITHKLINE-A0523064A

PATIENT
  Age: 56 Year
  Sex: Female

DRUGS (3)
  1. SEREVENT [Suspect]
     Indication: ASTHMA
     Dosage: 100MCG PER DAY
     Route: 055
  2. FLONASE [Concomitant]
  3. SUDAFED S.A. [Concomitant]

REACTIONS (2)
  - APHTHOUS STOMATITIS [None]
  - DIZZINESS [None]
